FAERS Safety Report 18168325 (Version 20)
Quarter: 2025Q1

REPORT INFORMATION
  Report Type: Report from Study
  Country: US (occurrence: US)
  Receive Date: 20200819
  Receipt Date: 20250210
  Transmission Date: 20250408
  Serious: Yes (Other)
  Sender: TAKEDA
  Company Number: US-SHIRE-US202026650

PATIENT
  Age: 81 Year
  Sex: Male
  Weight: 92 kg

DRUGS (15)
  1. HUMAN IMMUNOGLOBULIN G [Suspect]
     Active Substance: HUMAN IMMUNOGLOBULIN G
     Indication: Immunodeficiency common variable
     Dosage: 10 GRAM, 1/WEEK
     Dates: start: 20180706
  2. HUMAN IMMUNOGLOBULIN G [Suspect]
     Active Substance: HUMAN IMMUNOGLOBULIN G
     Dosage: 10 GRAM, 1/WEEK
     Dates: start: 20181009
  3. ACETAMINOPHEN [Concomitant]
     Active Substance: ACETAMINOPHEN
  4. DILANTIN [Concomitant]
     Active Substance: PHENYTOIN
  5. VYTORIN [Concomitant]
     Active Substance: EZETIMIBE\SIMVASTATIN
  6. ATENOLOL [Concomitant]
     Active Substance: ATENOLOL
  7. VITAMIN C [Concomitant]
     Active Substance: ASCORBIC ACID
  8. PANTOPRAZOLE SODIUM [Concomitant]
     Active Substance: PANTOPRAZOLE SODIUM
  9. PRADAXA [Concomitant]
     Active Substance: DABIGATRAN ETEXILATE MESYLATE
  10. LIDOCAINE [Concomitant]
     Active Substance: LIDOCAINE
  11. DIPHENHYDRAMINE HYDROCHLORIDE [Concomitant]
     Active Substance: DIPHENHYDRAMINE HYDROCHLORIDE
  12. DIPHENHYDRAMINE [Concomitant]
     Active Substance: DIPHENHYDRAMINE
  13. IMMUNE SUPPORT [Concomitant]
  14. PANTOPRAZOLE [Concomitant]
     Active Substance: PANTOPRAZOLE
  15. EPINEPHRINE [Concomitant]
     Active Substance: EPINEPHRINE

REACTIONS (12)
  - Macular degeneration [Unknown]
  - Cellulitis [Unknown]
  - Nasopharyngitis [Unknown]
  - Infusion site discharge [Recovering/Resolving]
  - Product leakage [Unknown]
  - Limb discomfort [Unknown]
  - Inappropriate schedule of product administration [Recovering/Resolving]
  - Device leakage [Unknown]
  - Product dose omission issue [Unknown]
  - Infusion site mass [Unknown]
  - Cough [Unknown]
  - Infusion site erythema [Unknown]

NARRATIVE: CASE EVENT DATE: 20240123
